FAERS Safety Report 21581827 (Version 4)
Quarter: 2023Q1

REPORT INFORMATION
  Report Type: Spontaneous
  Country: US (occurrence: US)
  Receive Date: 20221111
  Receipt Date: 20230124
  Transmission Date: 20230417
  Serious: No
  Sender: FDA-Public Use
  Company Number: US-002147023-NVSC2022US252175

PATIENT
  Sex: Female

DRUGS (9)
  1. XIIDRA [Suspect]
     Active Substance: LIFITEGRAST
     Indication: Product used for unknown indication
     Dosage: UNK
     Route: 047
     Dates: start: 2020
  2. XIIDRA [Suspect]
     Active Substance: LIFITEGRAST
     Dosage: UNK
     Route: 047
     Dates: start: 20220922
  3. XIIDRA [Suspect]
     Active Substance: LIFITEGRAST
     Dosage: 50 MILLIGRAM PER MILLILITRE, BID (DROP)
     Route: 047
  4. XIIDRA [Suspect]
     Active Substance: LIFITEGRAST
     Dosage: UNK, (NDC 0078091105)
     Route: 065
     Dates: end: 20221029
  5. LATANOPROST [Concomitant]
     Active Substance: LATANOPROST
     Indication: Product used for unknown indication
     Dosage: UNK
     Route: 065
  6. BRIMONIDINE [Concomitant]
     Active Substance: BRIMONIDINE TARTRATE
     Indication: Product used for unknown indication
     Dosage: UNK
     Route: 065
  7. ADVAIR HFA [Concomitant]
     Active Substance: FLUTICASONE PROPIONATE\SALMETEROL XINAFOATE
     Indication: Product used for unknown indication
     Dosage: UNK
     Route: 065
  8. CLARITIN [Concomitant]
     Active Substance: LORATADINE
     Indication: Product used for unknown indication
     Dosage: UNK
     Route: 065
  9. PANTOPRAZOLE [Concomitant]
     Active Substance: PANTOPRAZOLE
     Indication: Product used for unknown indication
     Dosage: UNK
     Route: 065

REACTIONS (1)
  - Dysgeusia [Unknown]
